FAERS Safety Report 21556309 (Version 1)
Quarter: 2022Q4

REPORT INFORMATION
  Report Type: Spontaneous
  Country: US (occurrence: US)
  Receive Date: 20221104
  Receipt Date: 20221104
  Transmission Date: 20230113
  Serious: Yes (Other)
  Sender: FDA-Public Use
  Company Number: US-BIOVITRUM-2022US10900

PATIENT
  Sex: Female

DRUGS (1)
  1. KINERET [Suspect]
     Active Substance: ANAKINRA
     Indication: Rheumatoid arthritis
     Dates: start: 20190506

REACTIONS (7)
  - Rheumatoid arthritis [Unknown]
  - COVID-19 [Unknown]
  - Serum ferritin increased [Unknown]
  - Serum sickness-like reaction [Unknown]
  - Hypersensitivity [Unknown]
  - Aspartate aminotransferase increased [Unknown]
  - Product dose omission issue [Unknown]
